FAERS Safety Report 16513784 (Version 1)
Quarter: 2019Q3

REPORT INFORMATION
  Report Type: Spontaneous
  Country: US (occurrence: US)
  Receive Date: 20190701
  Receipt Date: 20190701
  Transmission Date: 20191004
  Serious: No
  Sender: FDA-Public Use
  Company Number: US-ROCHE-2168249

PATIENT
  Age: 55 Year
  Sex: Female

DRUGS (16)
  1. LAMICTAL [Concomitant]
     Active Substance: LAMOTRIGINE
     Indication: AFFECTIVE DISORDER
     Route: 048
  2. ABILIFY [Concomitant]
     Active Substance: ARIPIPRAZOLE
     Indication: DEPRESSION
     Dosage: LOW DOSE
     Route: 048
  3. ZYPREXA [Concomitant]
     Active Substance: OLANZAPINE
  4. LATUDA [Concomitant]
     Active Substance: LURASIDONE HYDROCHLORIDE
  5. TOPAMAX [Concomitant]
     Active Substance: TOPIRAMATE
  6. VIIBRYD [Concomitant]
     Active Substance: VILAZODONE HYDROCHLORIDE
  7. EFFEXOR [Concomitant]
     Active Substance: VENLAFAXINE HYDROCHLORIDE
  8. BUSPAR [Concomitant]
     Active Substance: BUSPIRONE HYDROCHLORIDE
  9. EFFEXOR [Concomitant]
     Active Substance: VENLAFAXINE HYDROCHLORIDE
     Indication: OBSESSIVE-COMPULSIVE DISORDER
     Route: 065
     Dates: start: 1996, end: 201208
  10. KLONOPIN [Suspect]
     Active Substance: CLONAZEPAM
     Indication: PRODUCT USED FOR UNKNOWN INDICATION
     Route: 065
  11. ZIPRASIDONE HCL [Concomitant]
     Active Substance: ZIPRASIDONE HYDROCHLORIDE
  12. ADDERALL [Concomitant]
     Active Substance: AMPHETAMINE ASPARTATE\AMPHETAMINE SULFATE\DEXTROAMPHETAMINE SACCHARATE\DEXTROAMPHETAMINE SULFATE
  13. RITALIN [Concomitant]
     Active Substance: METHYLPHENIDATE HYDROCHLORIDE
  14. XANAX [Concomitant]
     Active Substance: ALPRAZOLAM
  15. GABAPENTIN. [Concomitant]
     Active Substance: GABAPENTIN
  16. SEROQUEL [Concomitant]
     Active Substance: QUETIAPINE FUMARATE

REACTIONS (1)
  - Fear [Not Recovered/Not Resolved]

NARRATIVE: CASE EVENT DATE: 201208
